FAERS Safety Report 6536030-3 (Version None)
Quarter: 2009Q4

REPORT INFORMATION
  Report Type: 
  Country: None (occurrence: None)
  Receive Date: 20091229
  Receipt Date: 20090323
  Transmission Date: 20100525
  Serious: Yes (Other)
  Sender: FDA-Public Use
  Company Number: WAES 0903USA04263

PATIENT
  Sex: Female

DRUGS (1)
  1. ZETIA [Suspect]
     Dosage: PO
     Route: 048
     Dates: end: 20090321

REACTIONS (2)
  - DIARRHOEA [None]
  - RHABDOMYOLYSIS [None]
